FAERS Safety Report 14349881 (Version 10)
Quarter: 2024Q1

REPORT INFORMATION
  Report Type: Spontaneous
  Country: BE (occurrence: BE)
  Receive Date: 20180104
  Receipt Date: 20240310
  Transmission Date: 20240410
  Serious: Yes (Hospitalization, Other)
  Sender: FDA-Public Use
  Company Number: BE-AUROBINDO-AUR-APL-2018-000003

PATIENT
  Age: 67 Year
  Sex: Male
  Weight: 100 kg

DRUGS (19)
  1. OMEPRAZOLE [Suspect]
     Active Substance: OMEPRAZOLE
     Indication: Prophylaxis
     Dosage: 20 MILLIGRAM, ONCE A DAY
     Route: 065
     Dates: start: 20150530, end: 20160112
  2. ENALAPRIL [Suspect]
     Active Substance: ENALAPRIL
     Indication: Hypertension
     Dosage: 5 MILLIGRAM, ONCE A DAY
     Route: 065
     Dates: start: 20150818, end: 20160112
  3. OMEPRAZOLE [Suspect]
     Active Substance: OMEPRAZOLE
     Indication: Prophylaxis
     Dosage: 20 MILLIGRAM, ONCE A DAY
     Route: 016
     Dates: start: 20150530, end: 20160112
  4. SOLU-MEDROL [Suspect]
     Active Substance: METHYLPREDNISOLONE SODIUM SUCCINATE
     Indication: Renal transplant
     Dosage: UNK
     Route: 065
  5. CELLCEPT [Suspect]
     Active Substance: MYCOPHENOLATE MOFETIL
     Indication: Renal transplant
     Dosage: 500 MILLIGRAM, ONCE A DAY (500 MG, BID)
     Route: 048
     Dates: start: 20150520, end: 20151117
  6. METHYLPREDNISOLONE [Suspect]
     Active Substance: METHYLPREDNISOLONE
     Indication: Renal transplant
     Dosage: 4 MILLIGRAM, ONCE A DAY
     Route: 065
     Dates: start: 20150519
  7. METHYLPREDNISOLONE [Suspect]
     Active Substance: METHYLPREDNISOLONE
     Dosage: 8 MILLIGRAM, ONCE A DAY
     Route: 065
  8. METHYLPREDNISOLONE [Suspect]
     Active Substance: METHYLPREDNISOLONE
     Dosage: UNK, UNKNOWN FREQ.
     Route: 065
  9. MEDROL [Suspect]
     Active Substance: METHYLPREDNISOLONE
     Indication: Renal transplant
     Dosage: 8 MILLIGRAM, ONCE A DAY
     Route: 016
     Dates: start: 20150519
  10. EZETIMIBE\SIMVASTATIN [Suspect]
     Active Substance: EZETIMIBE\SIMVASTATIN
     Indication: Hypercholesterolaemia
     Dosage: 10 MILLIGRAM, ONCE A DAY
     Route: 065
     Dates: start: 20150602, end: 20160204
  11. TACROLIMUS [Suspect]
     Active Substance: TACROLIMUS
     Indication: Renal transplant
     Dosage: 3 MILLIGRAM, ONCE A DAY (3 MG, BID)
     Route: 065
     Dates: start: 20151231, end: 20160221
  12. TACROLIMUS [Suspect]
     Active Substance: TACROLIMUS
     Dosage: 7 MILLIGRAM, ONCE A DAY
     Route: 065
     Dates: start: 20150520, end: 20151117
  13. TACROLIMUS [Suspect]
     Active Substance: TACROLIMUS
     Indication: Renal transplant
     Dosage: 3.5 MILLIGRAM, ONCE A DAY
     Route: 065
     Dates: start: 20150520, end: 20151117
  14. CEFUROXIME [Suspect]
     Active Substance: CEFUROXIME
     Indication: Infection
     Dosage: UNK
     Route: 065
     Dates: start: 20160119, end: 20160120
  15. NEORAL [Concomitant]
     Active Substance: CYCLOSPORINE
     Indication: Renal transplant
     Dosage: 100 MG, BID
     Route: 065
     Dates: start: 20160227
  16. LEVOTHYROXINE [Concomitant]
     Active Substance: LEVOTHYROXINE\LEVOTHYROXINE SODIUM
     Indication: Hypothyroidism
     Dosage: 100 MICROGRAM, ONCE A DAY
     Route: 016
     Dates: start: 20090731
  17. INSULIN ASPART [Concomitant]
     Active Substance: INSULIN ASPART
     Indication: Diabetes mellitus
     Dosage: 36 DOSAGE FORM, ONCE A DAY
     Route: 065
     Dates: start: 20060101
  18. SODIUM BICARBONATE [Concomitant]
     Active Substance: SODIUM BICARBONATE
     Indication: Acidosis
     Dosage: 6 MILLIGRAM, ONCE A DAY
     Route: 065
     Dates: start: 20150602
  19. SODIUM BICARBONATE [Concomitant]
     Active Substance: SODIUM BICARBONATE
     Dosage: 10 MILLIGRAM, ONCE A DAY
     Route: 065
     Dates: start: 20150602

REACTIONS (5)
  - Neutropenia [Not Recovered/Not Resolved]
  - Lymphangitis [Not Recovered/Not Resolved]
  - Bronchopneumopathy [Recovered/Resolved]
  - Necrosis [Recovered/Resolved]
  - Osteitis [Recovered/Resolved]

NARRATIVE: CASE EVENT DATE: 20151103
